FAERS Safety Report 10016147 (Version 1)
Quarter: 2014Q1

REPORT INFORMATION
  Report Type: Report from Study
  Country: CH (occurrence: CH)
  Receive Date: 20140317
  Receipt Date: 20140317
  Transmission Date: 20141002
  Serious: Yes (Hospitalization, Other)
  Sender: FDA-Public Use
  Company Number: CH-TEVA-466950ISR

PATIENT
  Age: 68 Year
  Sex: Male

DRUGS (4)
  1. GEMCITABINE [Suspect]
     Indication: PANCREATIC CARCINOMA
     Dosage: 2000 MILLIGRAM DAILY;
     Route: 042
     Dates: start: 20111118, end: 20111201
  2. ELOXANTIN [Concomitant]
     Indication: PANCREATIC CARCINOMA
     Dosage: 200 MILLIGRAM DAILY;
     Route: 042
     Dates: start: 20111118, end: 20111201
  3. TRAMADOL [Concomitant]
     Indication: PAIN
     Dosage: 200 MILLIGRAM DAILY;
     Route: 065
     Dates: start: 20111201
  4. PANTOPRAZOL [Concomitant]
     Indication: PROPHYLAXIS AGAINST GASTROINTESTINAL ULCER
     Dosage: 40 MILLIGRAM DAILY;
     Route: 065
     Dates: start: 20111118

REACTIONS (3)
  - Upper gastrointestinal haemorrhage [Recovered/Resolved]
  - Haematemesis [Recovered/Resolved]
  - Pancreatic duct stenosis [Recovered/Resolved]
